FAERS Safety Report 20758845 (Version 1)
Quarter: 2022Q2

REPORT INFORMATION
  Report Type: Spontaneous
  Country: US (occurrence: US)
  Receive Date: 20220427
  Receipt Date: 20220427
  Transmission Date: 20220720
  Serious: No
  Sender: FDA-Public Use
  Company Number: US-PFIZER INC-202101354204

PATIENT
  Sex: Male

DRUGS (3)
  1. VIAGRA [Suspect]
     Active Substance: SILDENAFIL CITRATE
     Indication: Erectile dysfunction
     Dosage: UNK
  2. MUSE [Suspect]
     Active Substance: ALPROSTADIL
     Indication: Erectile dysfunction
     Dosage: 250 UG (1 APPLICATOR, 6 APPLICATOR)
  3. MUSE [Suspect]
     Active Substance: ALPROSTADIL
     Dosage: 500 UG

REACTIONS (1)
  - Drug ineffective [Not Recovered/Not Resolved]
